FAERS Safety Report 6066906-5 (Version None)
Quarter: 2009Q1

REPORT INFORMATION
  Report Type: 
  Country: None (occurrence: None)
  Receive Date: 20090205
  Receipt Date: 20090203
  Transmission Date: 20090719
  Serious: Yes (Death)
  Sender: FDA-Public Use
  Company Number: IT-BRISTOL-MYERS SQUIBB COMPANY-14464796

PATIENT
  Age: 81 Year
  Sex: Female

DRUGS (9)
  1. COUMADIN [Suspect]
     Indication: ATRIAL FIBRILLATION
     Route: 048
     Dates: start: 20071222, end: 20081219
  2. IDROQUARK [Concomitant]
     Indication: HYPERTENSION
     Dosage: 1 DOSAGE FORM = 5MG+25 MG TABS
     Route: 048
  3. ACTONEL [Concomitant]
     Indication: OSTEOPOROSIS
     Route: 048
  4. LANOXIN [Concomitant]
     Indication: CARDIAC FAILURE
     Dosage: 1 DOSAGE FORM =0.125 MG TABS
     Route: 048
  5. EUTIROX [Concomitant]
     Indication: HYPOTHYROIDISM
     Dosage: 1 DOSAGE FORM = 25 MCG TABS
     Route: 048
  6. DIURESIX [Concomitant]
     Indication: CARDIAC FAILURE
     Dosage: 1 DOSAGE FORM= 10 MG TABS
     Route: 048
  7. MIRAPEX [Concomitant]
     Indication: PARKINSON'S DISEASE
     Route: 048
  8. SINEMET CR [Concomitant]
     Indication: PARKINSON'S DISEASE
     Dosage: 3 DOSAGE FORM
     Route: 048
  9. LANTANON [Concomitant]

REACTIONS (1)
  - SUDDEN DEATH [None]
